FAERS Safety Report 7007807-5 (Version None)
Quarter: 2010Q3

REPORT INFORMATION
  Report Type: 
  Country: None (occurrence: None)
  Receive Date: 20100922
  Receipt Date: 20100920
  Transmission Date: 20110219
  Serious: Yes (Hospitalization, Other)
  Sender: FDA-Public Use
  Company Number: DE-BRISTOL-MYERS SQUIBB COMPANY-15270028

PATIENT
  Age: 27 Year
  Sex: Male

DRUGS (5)
  1. ABILIFY [Suspect]
     Indication: DELUSION
     Route: 048
     Dates: start: 20100724, end: 20100826
  2. ABILIFY [Suspect]
     Indication: SCHIZOPHRENIA
     Route: 048
     Dates: start: 20100724, end: 20100826
  3. FLUANXOL [Suspect]
     Indication: DELUSION
     Route: 048
     Dates: start: 20100701
  4. FLUANXOL [Suspect]
     Indication: SCHIZOPHRENIA
     Route: 048
     Dates: start: 20100701
  5. AKINETON [Concomitant]
     Indication: EXTRAPYRAMIDAL DISORDER
     Route: 048
     Dates: start: 20100712

REACTIONS (3)
  - AGGRESSION [None]
  - DELUSION [None]
  - HALLUCINATION, AUDITORY [None]
